FAERS Safety Report 12323699 (Version 5)
Quarter: 2016Q3

REPORT INFORMATION
  Report Type: Report from Study
  Country: AT (occurrence: AT)
  Receive Date: 20160502
  Receipt Date: 20160712
  Transmission Date: 20161109
  Serious: Yes (Hospitalization)
  Sender: FDA-Public Use
  Company Number: AT-BAYER-2016-074408

PATIENT
  Age: 95 Year
  Sex: Female
  Weight: 50 kg

DRUGS (15)
  1. ACETYLSALICYLIC ACID({=100 MG) [Suspect]
     Active Substance: ASPIRIN
     Indication: ANTIPLATELET THERAPY
     Dosage: 100 MG, QD
     Route: 048
     Dates: start: 20160415, end: 20160504
  2. TORASEMID [Concomitant]
     Active Substance: TORSEMIDE
     Dosage: 5 MG, QD
     Route: 048
     Dates: start: 20010422
  3. PANTOLOC [Concomitant]
     Active Substance: PANTOPRAZOLE SODIUM
     Dosage: 40 MG, QD
     Route: 048
     Dates: start: 2000
  4. TORASEMID [Concomitant]
     Active Substance: TORSEMIDE
     Dosage: 20 MG, QD
     Route: 048
     Dates: start: 20160418, end: 20160419
  5. RIVAROXABAN [Suspect]
     Active Substance: RIVAROXABAN
     Indication: ANTICOAGULANT THERAPY
     Dosage: 10 MG, QD
     Route: 048
     Dates: start: 20160415, end: 20160504
  6. CAL D VITA [CALCIUM CARBONATE,COLECALCIFEROL] [Concomitant]
     Dosage: 1 DF, QD
     Dates: start: 2000
  7. TORASEMID [Concomitant]
     Active Substance: TORSEMIDE
     Dosage: 10 MG, QD
     Route: 048
     Dates: start: 20160420, end: 20160421
  8. CLOPIDOGREL [Concomitant]
     Active Substance: CLOPIDOGREL BISULFATE
     Indication: TRANSCATHETER AORTIC VALVE IMPLANTATION
     Dosage: 75 MG, QD
     Route: 048
     Dates: start: 20160505
  9. KALIORAL [POTASSIUM CANRENOATE] [Concomitant]
     Dosage: 1 DF, QD
     Route: 048
     Dates: start: 20160419, end: 20160420
  10. ENALAPRIL [Concomitant]
     Active Substance: ENALAPRIL
     Dosage: 10 MG, QD
     Route: 048
     Dates: start: 201603, end: 20160404
  11. CLOPIDOGREL [Concomitant]
     Active Substance: CLOPIDOGREL BISULFATE
     Indication: TRANSCATHETER AORTIC VALVE IMPLANTATION
     Dosage: 75 MG, QD
     Route: 048
     Dates: start: 201603, end: 20160414
  12. EUTHYROX [Concomitant]
     Active Substance: LEVOTHYROXINE SODIUM
     Dosage: 75 ?G, QD
     Route: 048
     Dates: start: 2008
  13. LOVENOX [Concomitant]
     Active Substance: ENOXAPARIN SODIUM
     Dosage: 40 MG, QD
     Route: 058
     Dates: start: 20160410, end: 20160414
  14. CONCOR [Concomitant]
     Active Substance: BISOPROLOL FUMARATE
     Dosage: 2.5 MG, QD
     Route: 048
     Dates: start: 2000
  15. HYPREN [Concomitant]
     Dosage: 2.5 MG, QD
     Route: 048
     Dates: start: 20160417, end: 20160421

REACTIONS (4)
  - Dyspnoea [Recovered/Resolved]
  - Hypertension [Recovered/Resolved]
  - Haemorrhage [Recovered/Resolved with Sequelae]
  - Haemorrhage [Recovered/Resolved with Sequelae]

NARRATIVE: CASE EVENT DATE: 20160417
